FAERS Safety Report 18056712 (Version 1)
Quarter: 2020Q3

REPORT INFORMATION
  Report Type: Spontaneous
  Country: US (occurrence: US)
  Receive Date: 20200722
  Receipt Date: 20200722
  Transmission Date: 20201103
  Serious: No
  Sender: FDA-Public Use
  Company Number: US-ASTRAZENECA-2020SE87527

PATIENT
  Sex: Female
  Weight: 52.6 kg

DRUGS (4)
  1. FLUCONAZOLE. [Concomitant]
     Active Substance: FLUCONAZOLE
     Indication: VULVOVAGINAL MYCOTIC INFECTION
     Dosage: FOR 5 DOSES, AND IS ON HER THIRD PILL. THE FIRST COURSE HELPED, WHICH WAS 3 DAYS OF THE SAME MEDI...
     Route: 048
  2. TERCONAZOLE. [Concomitant]
     Active Substance: TERCONAZOLE
     Indication: VULVOVAGINAL MYCOTIC INFECTION
     Route: 061
  3. FASENRA [Suspect]
     Active Substance: BENRALIZUMAB
     Indication: ASTHMA
     Route: 058
     Dates: start: 202002
  4. FASENRA [Suspect]
     Active Substance: BENRALIZUMAB
     Indication: ASTHMA
     Route: 058
     Dates: start: 20200623

REACTIONS (3)
  - Vulvovaginal mycotic infection [Recovering/Resolving]
  - Insomnia [Recovering/Resolving]
  - Vulvovaginal pain [Recovering/Resolving]
